FAERS Safety Report 8453863-7 (Version None)
Quarter: 2012Q2

REPORT INFORMATION
  Report Type: 
  Country: None (occurrence: None)
  Receive Date: 20120620
  Receipt Date: 20120612
  Transmission Date: 20120825
  Serious: Yes (Hospitalization, Other)
  Sender: FDA-Public Use
  Company Number: US-ABBOTT-12P-163-0936183-00

PATIENT
  Sex: Male
  Weight: 113.5 kg

DRUGS (1)
  1. HUMIRA [Suspect]
     Indication: PSORIATIC ARTHROPATHY
     Dates: start: 20070829, end: 20120401

REACTIONS (5)
  - CONVULSION [None]
  - ASTROCYTOMA [None]
  - AGITATION [None]
  - TINNITUS [None]
  - ROAD TRAFFIC ACCIDENT [None]
